FAERS Safety Report 18081092 (Version 1)
Quarter: 2020Q3

REPORT INFORMATION
  Report Type: Spontaneous
  Country: GB (occurrence: GB)
  Receive Date: 20200728
  Receipt Date: 20200728
  Transmission Date: 20201103
  Serious: Yes (Other)
  Sender: FDA-Public Use
  Company Number: NVSC2020GB203898

PATIENT
  Age: 56 Year
  Sex: Female
  Weight: 128 kg

DRUGS (7)
  1. SYMBICORT [Concomitant]
     Active Substance: BUDESONIDE\FORMOTEROL FUMARATE DIHYDRATE
     Indication: PRODUCT USED FOR UNKNOWN INDICATION
     Dosage: USE AS DIRECTED
     Route: 065
     Dates: start: 20200623
  2. COCODAMOL [Concomitant]
     Active Substance: ACETAMINOPHEN\CODEINE PHOSPHATE
     Indication: PAIN
     Dosage: TAKE 1 OR 2 4 TIMES/DAY WHEN REQUIRED ONLY FOR PAIN
     Route: 065
     Dates: start: 20200702
  3. SALBUTAMOL [Concomitant]
     Active Substance: ALBUTEROL
     Indication: PRODUCT USED FOR UNKNOWN INDICATION
     Dosage: 2 DF,INHALE 2 DOSES AS NEEDED
     Route: 055
     Dates: start: 20190507
  4. BUDESONIDE. [Concomitant]
     Active Substance: BUDESONIDE
     Indication: PRODUCT USED FOR UNKNOWN INDICATION
     Dosage: 4 DF, BID,2 PUFF TWICE DAILY, (1596  DF)
     Route: 065
     Dates: start: 20190530
  5. CETIRIZINE [Concomitant]
     Active Substance: CETIRIZINE HYDROCHLORIDE
     Indication: PRODUCT USED FOR UNKNOWN INDICATION
     Dosage: 1 DF, QD, (4 DF)
     Route: 065
     Dates: start: 20200706
  6. AMLODIPINE [Suspect]
     Active Substance: AMLODIPINE BESYLATE
     Indication: PRODUCT USED FOR UNKNOWN INDICATION
     Dosage: 5 MG, QD
     Route: 065
     Dates: start: 20200702
  7. PREGABALIN. [Concomitant]
     Active Substance: PREGABALIN
     Indication: PRODUCT USED FOR UNKNOWN INDICATION
     Dosage: 4 DF, QD, (376 DF)
     Route: 065
     Dates: start: 20200330

REACTIONS (2)
  - Dyspnoea [Unknown]
  - Swollen tongue [Recovering/Resolving]

NARRATIVE: CASE EVENT DATE: 20200702
